FAERS Safety Report 6060129-1 (Version None)
Quarter: 2009Q1

REPORT INFORMATION
  Report Type: 
  Country: None (occurrence: None)
  Receive Date: 20090128
  Receipt Date: 20090121
  Transmission Date: 20090719
  Serious: Yes (Life-Threatening, Other)
  Sender: FDA-Public Use
  Company Number: CERZ-1000246

PATIENT
  Age: 11 Year
  Sex: Male
  Weight: 24.2 kg

DRUGS (3)
  1. CEREZYME [Suspect]
     Indication: GAUCHER'S DISEASE
     Dosage: INTRAVENOUS; 60 U/KG, INTRAVENOUS
     Route: 042
     Dates: start: 19990101, end: 20080519
  2. CEREZYME [Suspect]
     Indication: GAUCHER'S DISEASE
     Dosage: INTRAVENOUS; 60 U/KG, INTRAVENOUS
     Route: 042
     Dates: start: 20080901
  3. LORATADINE [Concomitant]

REACTIONS (7)
  - COUGH [None]
  - EYELID OEDEMA [None]
  - INCREASED BRONCHIAL SECRETION [None]
  - INFUSION RELATED REACTION [None]
  - PERIORBITAL OEDEMA [None]
  - STRIDOR [None]
  - VOMITING [None]
